FAERS Safety Report 23263056 (Version 4)
Quarter: 2024Q2

REPORT INFORMATION
  Report Type: Spontaneous
  Country: US (occurrence: US)
  Receive Date: 20231205
  Receipt Date: 20240425
  Transmission Date: 20240715
  Serious: Yes (Other)
  Sender: FDA-Public Use
  Company Number: US-BRISTOL-MYERS SQUIBB COMPANY-2023-173063

PATIENT
  Age: 74 Year
  Sex: Female

DRUGS (3)
  1. ORENCIA [Suspect]
     Active Substance: ABATACEPT
     Indication: Rheumatoid arthritis
     Route: 058
     Dates: start: 202310
  2. ORENCIA [Suspect]
     Active Substance: ABATACEPT
     Route: 058
     Dates: start: 202311, end: 202403
  3. ENBREL [Concomitant]
     Active Substance: ETANERCEPT
     Indication: Product used for unknown indication
     Dosage: SURECLICK PF AUTOINJ

REACTIONS (6)
  - Drug ineffective [Unknown]
  - Drug delivery system issue [Unknown]
  - Device difficult to use [Unknown]
  - Injection site rash [Unknown]
  - Cataract [Unknown]
  - Myalgia [Unknown]
